FAERS Safety Report 13613599 (Version 1)
Quarter: 2017Q2

REPORT INFORMATION
  Report Type: Spontaneous
  Country: CA (occurrence: CA)
  Receive Date: 20170605
  Receipt Date: 20170605
  Transmission Date: 20170830
  Serious: Yes (Other)
  Sender: FDA-Public Use
  Company Number: CA-ASTRAZENECA-2017SE56706

PATIENT
  Age: 77 Year
  Sex: Female

DRUGS (1)
  1. SYMBICORT [Suspect]
     Active Substance: BUDESONIDE\FORMOTEROL FUMARATE DIHYDRATE
     Indication: ASTHMA
     Dosage: 400 UG 2 PUFFS TWICE A DAY (MORNING AND NIGHT)
     Route: 055
     Dates: start: 201603, end: 20170531

REACTIONS (4)
  - Drug ineffective [Unknown]
  - Underdose [Unknown]
  - Asthma [Recovered/Resolved]
  - Device malfunction [Unknown]
